FAERS Safety Report 25123386 (Version 1)
Quarter: 2025Q1

REPORT INFORMATION
  Report Type: Spontaneous
  Country: US (occurrence: US)
  Receive Date: 20250326
  Receipt Date: 20250326
  Transmission Date: 20250409
  Serious: No
  Sender: GRIFOLS
  Company Number: US-IGSA-BIG0032282

PATIENT
  Sex: Male
  Weight: 82.54 kg

DRUGS (4)
  1. PROLASTIN-C LIQUID [Suspect]
     Active Substance: .ALPHA.1-PROTEINASE INHIBITOR HUMAN
     Indication: Alpha-1 antitrypsin deficiency
     Dosage: 5295 MILLIGRAM, Q.WK.
     Route: 042
  2. HYDROCODONE BITARTRATE AND ACETAMINOPHEN [Concomitant]
     Active Substance: ACETAMINOPHEN\HYDROCODONE BITARTRATE
  3. LOPERAMIDE [Concomitant]
     Active Substance: LOPERAMIDE
  4. OXYGEN [Concomitant]
     Active Substance: OXYGEN

REACTIONS (4)
  - Blister [Unknown]
  - Condition aggravated [Unknown]
  - Peripheral swelling [Unknown]
  - Peripheral swelling [Unknown]
